FAERS Safety Report 16633452 (Version 1)
Quarter: 2019Q3

REPORT INFORMATION
  Report Type: Spontaneous
  Country: US (occurrence: US)
  Receive Date: 20190725
  Receipt Date: 20190725
  Transmission Date: 20191004
  Serious: Yes (Other)
  Sender: FDA-Public Use
  Company Number: US-NAPPMUNDI-USA-2019-0147848

PATIENT
  Sex: Male

DRUGS (2)
  1. MORPHINE SULFATE EXTENDED-RELEASE TABLETS (RHODES 74-769) [Suspect]
     Active Substance: MORPHINE SULFATE
     Indication: PAIN
     Dosage: 30 MG, TID
     Route: 048
     Dates: start: 2004, end: 201903
  2. HYDROCODONE BITARTRATE (SIMILAR TO NDA 206627) [Suspect]
     Active Substance: HYDROCODONE BITARTRATE
     Indication: PAIN
     Dosage: 5 MG, 5/DAY
     Route: 048
     Dates: end: 201903

REACTIONS (3)
  - Oesophageal stenosis [Unknown]
  - Foreign body in respiratory tract [Unknown]
  - Dysphagia [Unknown]
